FAERS Safety Report 4279319-3 (Version None)
Quarter: 2004Q1

REPORT INFORMATION
  Report Type: 
  Country: None (occurrence: None)
  Receive Date: 20040127
  Receipt Date: 20040116
  Transmission Date: 20041129
  Serious: Yes (Hospitalization, Other)
  Sender: FDA-Public Use
  Company Number: PHBS2004JP01063

PATIENT
  Age: 79 Year
  Sex: Female

DRUGS (5)
  1. DIOVAN [Suspect]
     Indication: HYPERTENSION
     Dosage: 80 MG/DAY
     Route: 048
  2. PRERAN [Suspect]
     Dosage: 1 MG/DAY
     Route: 048
  3. SELECTOL [Concomitant]
     Dosage: 200 MG, UNK
     Route: 048
  4. CALSLOT [Concomitant]
     Dosage: 20 MG, UNK
     Route: 048
  5. SM [Concomitant]
     Dosage: 3 G, UNK
     Route: 048

REACTIONS (3)
  - BLOOD CREATININE INCREASED [None]
  - PANCREATITIS [None]
  - RENAL FAILURE [None]
